FAERS Safety Report 12065388 (Version 1)
Quarter: 2016Q1

REPORT INFORMATION
  Report Type: Spontaneous
  Country: US (occurrence: US)
  Receive Date: 20160210
  Receipt Date: 20160210
  Transmission Date: 20160526
  Serious: No
  Sender: FDA-Public Use
  Company Number: US-ALLERGAN-1509882US

PATIENT
  Age: 7 Decade
  Sex: Male

DRUGS (3)
  1. BOTOX [Suspect]
     Active Substance: ONABOTULINUMTOXINA
     Dosage: 155 UNITS, SINGLE, 31 INJECTIONS (PREEMPT PARADIGM)
     Route: 030
  2. BOTOX [Suspect]
     Active Substance: ONABOTULINUMTOXINA
     Indication: HEADACHE
     Dosage: 155 UNITS, SINGLE, 31 INJECTIONS (PREEMPT PARADIGM)
     Route: 030
  3. BOTOX [Suspect]
     Active Substance: ONABOTULINUMTOXINA
     Dosage: 155 UNITS, SINGLE, 31 INJECTIONS (PREEMPT PARADIGM)
     Route: 030

REACTIONS (2)
  - Headache [Not Recovered/Not Resolved]
  - Dyspnoea [Unknown]
